FAERS Safety Report 5110157-5 (Version None)
Quarter: 2006Q3

REPORT INFORMATION
  Report Type: 
  Country: None (occurrence: None)
  Receive Date: 20060919
  Receipt Date: 20060919
  Transmission Date: 20061208
  Serious: Yes (Other)
  Sender: FDA-Public Use
  Company Number: None

PATIENT
  Sex: Female
  Weight: 78.4723 kg

DRUGS (3)
  1. VANCOMYCIN [Suspect]
     Indication: PROPHYLAXIS
     Dosage: 1 GRAM  Q12H X 2 DOSES ONLY IV
     Route: 042
     Dates: start: 20060630, end: 20060630
  2. VANCOMYCIN [Suspect]
     Indication: SURGERY
     Dosage: 1 GRAM  Q12H X 2 DOSES ONLY IV
     Route: 042
     Dates: start: 20060630, end: 20060630
  3. TRASYLOL [Suspect]
     Dosage: 600ML  INTRAOPERATIVE  INTRAVESICAL
     Route: 043
     Dates: start: 20060630, end: 20060630

REACTIONS (6)
  - CONTRAST MEDIA REACTION [None]
  - HYPOACUSIS [None]
  - POST PROCEDURAL COMPLICATION [None]
  - PROCEDURAL COMPLICATION [None]
  - RENAL FAILURE [None]
  - RENAL INJURY [None]
